FAERS Safety Report 8081578-6 (Version None)
Quarter: 2012Q1

REPORT INFORMATION
  Report Type: 
  Country: None (occurrence: None)
  Receive Date: 20120130
  Receipt Date: 20120117
  Transmission Date: 20120608
  Serious: Yes (Hospitalization, Other)
  Sender: FDA-Public Use
  Company Number: BR-ROCHE-1025341

PATIENT
  Sex: Female

DRUGS (11)
  1. SINGULAIR [Concomitant]
  2. BAMIFIX [Concomitant]
  3. BUDECORT [Concomitant]
  4. ACETYLCYSTEINE [Concomitant]
  5. XOLAIR [Suspect]
     Indication: PRODUCT USED FOR UNKNOWN INDICATION
     Route: 058
  6. PREDNISOLONE [Concomitant]
  7. SERETIDE [Concomitant]
  8. OMEPRAZOLE [Concomitant]
  9. MOTILIUM (BRAZIL) [Concomitant]
  10. SPIRIVA [Concomitant]
  11. ALBUTEROL [Concomitant]

REACTIONS (5)
  - HYPERTENSION [None]
  - ASTHMA [None]
  - OSTEOPOROSIS [None]
  - DYSPNOEA [None]
  - FATIGUE [None]
